FAERS Safety Report 6971191-3 (Version None)
Quarter: 2010Q3

REPORT INFORMATION
  Report Type: 
  Country: None (occurrence: None)
  Receive Date: 20100908
  Receipt Date: 20100824
  Transmission Date: 20110219
  Serious: Yes (Life-Threatening, Hospitalization)
  Sender: FDA-Public Use
  Company Number: DE-MYLANLABS-2010S1015374

PATIENT
  Age: 21 Year
  Sex: Male
  Weight: 108 kg

DRUGS (2)
  1. TOPIRAMATE [Suspect]
     Indication: EPILEPSY
     Dosage: TOOK ABOUT 40 200MG TABLETS IN A SUICIDE ATTEMPT
     Route: 048
  2. TOPIRAMATE [Suspect]
     Route: 048

REACTIONS (3)
  - INTENTIONAL OVERDOSE [None]
  - STATUS EPILEPTICUS [None]
  - SUICIDE ATTEMPT [None]
